FAERS Safety Report 8736467 (Version 3)
Quarter: 2012Q4

REPORT INFORMATION
  Report Type: Report from Study
  Country: US (occurrence: US)
  Receive Date: 20120822
  Receipt Date: 20121025
  Transmission Date: 20130627
  Serious: Yes (Hospitalization)
  Sender: FDA-Public Use
  Company Number: US-ROCHE-1101767

PATIENT
  Age: 54 Year
  Sex: Female
  Weight: 47 kg

DRUGS (4)
  1. BEVACIZUMAB [Suspect]
     Indication: OVARIAN EPITHELIAL CANCER
     Dosage: Last dose prior to SAE was taken on 29/Jun/2012
     Route: 042
     Dates: start: 20120629
  2. VELIPARIB [Suspect]
     Indication: OVARIAN EPITHELIAL CANCER
     Dosage: Last dose prior to SAE was taken on 03/Jul/2012
     Route: 048
  3. CARBOPLATIN [Suspect]
     Indication: OVARIAN EPITHELIAL CANCER
     Dosage: AUC= 6 over 30 minutes on day 1. Last dose prior to SAE was taken on 29/May/2012
     Route: 042
     Dates: start: 20120529
  4. PACLITAXEL [Suspect]
     Indication: OVARIAN EPITHELIAL CANCER
     Dosage: Last dose prior to SAE was taken on 06/Jul/2012. Day 15 held due to SBO.
     Route: 042
     Dates: start: 20120706

REACTIONS (11)
  - Anaemia [Unknown]
  - Abdominal pain [Unknown]
  - Hypokalaemia [Unknown]
  - Hypoalbuminaemia [Unknown]
  - Platelet count decreased [Unknown]
  - Hypomagnesaemia [Unknown]
  - Nausea [Unknown]
  - Small intestinal obstruction [Unknown]
  - Neutrophil count decreased [Unknown]
  - Vomiting [Unknown]
  - Febrile neutropenia [Recovering/Resolving]
